FAERS Safety Report 23789514 (Version 1)
Quarter: 2024Q2

REPORT INFORMATION
  Report Type: Report from Study
  Country: IT (occurrence: IT)
  Receive Date: 20240426
  Receipt Date: 20240426
  Transmission Date: 20240716
  Serious: Yes (Hospitalization, Other)
  Sender: FDA-Public Use
  Company Number: None

PATIENT
  Age: 9 Year
  Weight: 26 kg

DRUGS (6)
  1. METHOTREXATE [Suspect]
     Active Substance: METHOTREXATE
     Indication: B-cell type acute leukaemia
     Dosage: .438.50 MG INFUSION OVER 30 MIN. + 3946.50 MG INFUSION OVER 23.5 HOURS FROM 30 TO 31/01/2024, MET...
     Route: 042
     Dates: start: 20240130, end: 20240130
  2. VINCRISTINE [Concomitant]
     Active Substance: VINCRISTINE
     Indication: B-cell type acute leukaemia
     Dosage: 1.30 MG/DIE IN DATA 30/01, 04/02/2024, VINCRISTINA TEVA ITALIA
     Route: 042
     Dates: start: 20240130, end: 20240204
  3. PREDNISONE [Concomitant]
     Active Substance: PREDNISONE
     Indication: B-cell type acute leukaemia
     Route: 042
     Dates: start: 20240130, end: 20240205
  4. ERWINASE [Suspect]
     Active Substance: ASPARAGINASE ERWINIA CHRYSANTHEMI
     Indication: B-cell type acute leukaemia
     Dosage: 17540 U ON 04, 06, 08/02/2024
     Route: 042
     Dates: start: 20240204, end: 20240208
  5. CYTARABINE [Suspect]
     Active Substance: CYTARABINE
     Indication: B-cell type acute leukaemia
     Route: 042
     Dates: start: 20240202, end: 20240202
  6. CYCLOPHOSPHAMIDE [Suspect]
     Active Substance: CYCLOPHOSPHAMIDE
     Indication: B-cell type acute leukaemia
     Dosage: 175 MG X 2 TIMES/DAY FROM DAY 01 TO DAY 02/02/2024 (IN TOTAL 5 ADMINISTRATIONS), ENDOXAN BAXTER
     Route: 042
     Dates: start: 20240202, end: 20240202

REACTIONS (4)
  - Leukopenia [Recovered/Resolved]
  - Stomatitis [Recovered/Resolved]
  - Thrombocytopenia [Recovered/Resolved]
  - Febrile neutropenia [Recovered/Resolved]

NARRATIVE: CASE EVENT DATE: 20240206
